FAERS Safety Report 21580360 (Version 1)
Quarter: 2022Q4

REPORT INFORMATION
  Report Type: Spontaneous
  Country: CA (occurrence: CA)
  Receive Date: 20221110
  Receipt Date: 20221110
  Transmission Date: 20230113
  Serious: Yes (Other)
  Sender: FDA-Public Use
  Company Number: CA-JNJFOC-20220706070

PATIENT
  Age: 62 Year
  Sex: Female
  Weight: 84 kg

DRUGS (4)
  1. REMICADE [Suspect]
     Active Substance: INFLIXIMAB
     Indication: Crohn^s disease
     Route: 041
  2. PURINETHOL [Concomitant]
     Active Substance: MERCAPTOPURINE
     Dosage: 1.0 DOSAGE FORMS
     Route: 065
  3. PURINETHOL [Concomitant]
     Active Substance: MERCAPTOPURINE
     Route: 065
  4. PURINETHOL [Concomitant]
     Active Substance: MERCAPTOPURINE
     Route: 065

REACTIONS (10)
  - Asthenia [Not Recovered/Not Resolved]
  - Muscle spasms [Not Recovered/Not Resolved]
  - Weight decreased [Not Recovered/Not Resolved]
  - Condition aggravated [Not Recovered/Not Resolved]
  - Abdominal pain [Not Recovered/Not Resolved]
  - Diarrhoea [Not Recovered/Not Resolved]
  - Fatigue [Not Recovered/Not Resolved]
  - Nausea [Not Recovered/Not Resolved]
  - Intentional product use issue [Not Recovered/Not Resolved]
  - Off label use [Not Recovered/Not Resolved]
